FAERS Safety Report 12907982 (Version 1)
Quarter: 2016Q4

REPORT INFORMATION
  Report Type: Spontaneous
  Country: US (occurrence: US)
  Receive Date: 20161102
  Receipt Date: 20161102
  Transmission Date: 20170207
  Serious: Yes (Other)
  Sender: FDA-Public Use
  Company Number: None

PATIENT
  Age: 21 Year
  Sex: Male
  Weight: 79.83 kg

DRUGS (1)
  1. PROHANCE [Suspect]
     Active Substance: GADOTERIDOL
     Indication: NUCLEAR MAGNETIC RESONANCE IMAGING
     Route: 042
     Dates: start: 20161019, end: 20161019

REACTIONS (5)
  - Cardio-respiratory arrest [None]
  - Chest pain [None]
  - Seizure [None]
  - Vomiting [None]
  - Heart rate increased [None]

NARRATIVE: CASE EVENT DATE: 20161019
